FAERS Safety Report 14759668 (Version 3)
Quarter: 2018Q2

REPORT INFORMATION
  Report Type: Spontaneous
  Country: US (occurrence: US)
  Receive Date: 20180413
  Receipt Date: 20180418
  Transmission Date: 20180711
  Serious: Yes (Hospitalization, Other)
  Sender: FDA-Public Use
  Company Number: US-BIOGEN-2018BI00552066

PATIENT
  Age: 60 Year
  Sex: Male

DRUGS (2)
  1. TYSABRI [Suspect]
     Active Substance: NATALIZUMAB
     Route: 065
  2. TYSABRI [Suspect]
     Active Substance: NATALIZUMAB
     Indication: MULTIPLE SCLEROSIS
     Route: 042
     Dates: start: 20130409

REACTIONS (9)
  - Cirrhosis alcoholic [Unknown]
  - Autoscopy [Unknown]
  - Impaired quality of life [Not Recovered/Not Resolved]
  - Pain [Unknown]
  - Drug intolerance [Unknown]
  - Cholelithiasis [Unknown]
  - Neuralgia [Unknown]
  - Suicidal ideation [Unknown]
  - Urinary tract infection [Not Recovered/Not Resolved]

NARRATIVE: CASE EVENT DATE: 20171006
